FAERS Safety Report 5499640-0 (Version None)
Quarter: 2007Q4

REPORT INFORMATION
  Report Type: 
  Country: None (occurrence: None)
  Receive Date: 20071026
  Receipt Date: 20071019
  Transmission Date: 20080405
  Serious: Yes (Death)
  Sender: FDA-Public Use
  Company Number: GB-SANOFI-SYNTHELABO-A01200710404

PATIENT
  Age: 36 Year
  Sex: Male

DRUGS (3)
  1. PAZOPANIB [Suspect]
     Route: 048
     Dates: start: 20070806, end: 20070814
  2. XELODA [Suspect]
     Route: 048
     Dates: start: 20070806, end: 20070814
  3. OXALIPLATIN [Suspect]
     Indication: COLORECTAL CANCER METASTATIC
     Route: 042
     Dates: start: 20070806, end: 20070806

REACTIONS (1)
  - CARDIAC ARREST [None]
